FAERS Safety Report 8873552 (Version 2)
Quarter: 2012Q4

REPORT INFORMATION
  Report Type: Report from Study
  Country: US (occurrence: US)
  Receive Date: 20121030
  Receipt Date: 20121226
  Transmission Date: 20130627
  Serious: No
  Sender: FDA-Public Use
  Company Number: US-VERTEX PHARMACEUTICAL INC.-2012-023515

PATIENT
  Sex: Male
  Weight: 100 kg

DRUGS (11)
  1. VX-950 (TELAPREVIR) [Suspect]
     Indication: HEPATITIS C
     Dosage: 750 mg, tid
     Route: 048
  2. PEGASYS [Suspect]
     Indication: HEPATITIS C
     Dosage: 180 ?g, UNK
  3. RIBAPAK [Suspect]
     Indication: HEPATITIS C
     Dosage: 1200 mg, qd
  4. METFORMIN [Concomitant]
     Dosage: 1000 mg, UNK
  5. GLIPIZIDE [Concomitant]
     Dosage: 10 mg, UNK
  6. PROAIR HFA AER [Concomitant]
  7. ALBUTEROL                          /00139501/ [Concomitant]
     Dosage: 0.5 %, UNK
  8. OMEPRAZOLE [Concomitant]
     Dosage: 10 mg, UNK
  9. VITAMIN D /00107901/ [Concomitant]
     Dosage: 2000 ut, UNK
  10. MULTIVITAMIN                       /00097801/ [Concomitant]
  11. LEVEMIR [Concomitant]

REACTIONS (8)
  - Bone pain [Unknown]
  - Eczema [Unknown]
  - Xerosis [Unknown]
  - Excoriation [Unknown]
  - Haemorrhage [Unknown]
  - Pain [Unknown]
  - Erythema [Recovered/Resolved]
  - Drug ineffective [Unknown]
